FAERS Safety Report 9152813 (Version 2)
Quarter: 2013Q1

REPORT INFORMATION
  Report Type: Spontaneous
  Country: US (occurrence: US)
  Receive Date: 20130309
  Receipt Date: 20130314
  Transmission Date: 20140127
  Serious: No
  Sender: FDA-Public Use
  Company Number: US-009507513-1303USA001385

PATIENT
  Sex: Female

DRUGS (4)
  1. NASONEX [Suspect]
     Indication: NASAL CONGESTION
     Dosage: TWO SPRAYS IN EACH NOSTRIL ONCE DAILY
     Route: 045
     Dates: end: 20130208
  2. DULERA [Concomitant]
     Dosage: UNK
     Route: 055
     Dates: start: 201202
  3. COMBIVENT [Concomitant]
  4. SPIRIVA [Concomitant]

REACTIONS (1)
  - Swollen tongue [Recovered/Resolved]
